FAERS Safety Report 13079630 (Version 2)
Quarter: 2017Q2

REPORT INFORMATION
  Report Type: Spontaneous
  Country: GB (occurrence: GB)
  Receive Date: 20170103
  Receipt Date: 20170523
  Transmission Date: 20170830
  Serious: Yes (Death)
  Sender: FDA-Public Use
  Company Number: PHHY2016GB176277

PATIENT
  Sex: Female

DRUGS (1)
  1. OLANZAPINE. [Suspect]
     Active Substance: OLANZAPINE
     Indication: PRODUCT USED FOR UNKNOWN INDICATION
     Dosage: 10 MG, BID, MORNING AND NIGHT
     Route: 065

REACTIONS (3)
  - Trance [Fatal]
  - Depression suicidal [Fatal]
  - Completed suicide [Fatal]
